FAERS Safety Report 14656194 (Version 1)
Quarter: 2018Q1

REPORT INFORMATION
  Report Type: Spontaneous
  Country: FR (occurrence: FR)
  Receive Date: 20180319
  Receipt Date: 20180319
  Transmission Date: 20180509
  Serious: Yes (Hospitalization)
  Sender: FDA-Public Use
  Company Number: FR-TEVA-2018-FR-869452

PATIENT
  Age: 87 Year
  Sex: Male

DRUGS (1)
  1. ATENOLOL. [Suspect]
     Active Substance: ATENOLOL
     Indication: HYPERTENSION
     Dosage: CF. COMMENTAIRES
     Route: 048

REACTIONS (5)
  - Paroxysmal atrioventricular block [Recovering/Resolving]
  - Confusional state [Recovering/Resolving]
  - Bradycardia [Recovering/Resolving]
  - Loss of consciousness [Recovering/Resolving]
  - Malaise [Recovering/Resolving]
